FAERS Safety Report 18547185 (Version 3)
Quarter: 2020Q4

REPORT INFORMATION
  Report Type: Spontaneous
  Country: JP (occurrence: JP)
  Receive Date: 20201126
  Receipt Date: 20201218
  Transmission Date: 20210114
  Serious: Yes (Other)
  Sender: FDA-Public Use
  Company Number: JP-JNJFOC-20200537025

PATIENT
  Sex: Male

DRUGS (15)
  1. CONCERTA [Suspect]
     Active Substance: METHYLPHENIDATE HYDROCHLORIDE
     Dosage: DOSE UNKNOWN
     Route: 048
  2. CONCERTA [Suspect]
     Active Substance: METHYLPHENIDATE HYDROCHLORIDE
     Route: 048
  3. STRATTERA [Concomitant]
     Active Substance: ATOMOXETINE HYDROCHLORIDE
     Indication: ATTENTION DEFICIT HYPERACTIVITY DISORDER
     Dosage: DOSE UNKNOWN
     Route: 048
  4. ZOTEPINE [Concomitant]
     Active Substance: ZOTEPINE
     Route: 048
  5. CONCERTA [Suspect]
     Active Substance: METHYLPHENIDATE HYDROCHLORIDE
     Dosage: 300MG/DAY
     Route: 048
     Dates: start: 20201209
  6. CONCERTA [Suspect]
     Active Substance: METHYLPHENIDATE HYDROCHLORIDE
     Indication: ATTENTION DEFICIT HYPERACTIVITY DISORDER
     Dosage: 6:45 IN THE MORNING AND 12:45 IN THE AFTERNOON
     Route: 048
  7. FYCOMPA [Concomitant]
     Active Substance: PERAMPANEL
     Dosage: DOSE UNKNOWN
     Route: 048
  8. CONCERTA [Suspect]
     Active Substance: METHYLPHENIDATE HYDROCHLORIDE
     Route: 048
  9. CONCERTA [Suspect]
     Active Substance: METHYLPHENIDATE HYDROCHLORIDE
     Dosage: 200MG/DAY
     Route: 048
  10. WYPAX [Concomitant]
     Active Substance: LORAZEPAM
     Dosage: UNKNOWN
     Route: 065
  11. INTUNIV [Concomitant]
     Active Substance: GUANFACINE HYDROCHLORIDE
     Dosage: DOSE UNKNOWN
     Route: 048
  12. MEILAX [Concomitant]
     Active Substance: ETHYL LOFLAZEPATE
     Dosage: DOSE UNKNOWN
     Route: 048
  13. ZOTEPINE [Concomitant]
     Active Substance: ZOTEPINE
     Route: 048
     Dates: start: 20201209
  14. SENIRAN [Concomitant]
     Active Substance: BROMAZEPAM
     Dosage: UNKNOWN
     Route: 065
  15. OLANZAPINE. [Concomitant]
     Active Substance: OLANZAPINE
     Dosage: DOSE UNKNOWN
     Route: 048

REACTIONS (21)
  - Laziness [Unknown]
  - Weight decreased [Unknown]
  - Somnolence [Unknown]
  - Drug dependence [Unknown]
  - Personality change [Unknown]
  - Chest discomfort [Unknown]
  - Depressed mood [Unknown]
  - Erectile dysfunction [Unknown]
  - Hallucination, auditory [Unknown]
  - Inappropriate schedule of product administration [Unknown]
  - Decreased appetite [Unknown]
  - Off label use [Unknown]
  - Ejaculation delayed [Unknown]
  - Aggression [Unknown]
  - Delusion [Unknown]
  - Hepatic function abnormal [Unknown]
  - Hallucination [Unknown]
  - Wrong technique in product usage process [Unknown]
  - Erection increased [Unknown]
  - Agitation [Recovered/Resolved]
  - Overdose [Unknown]

NARRATIVE: CASE EVENT DATE: 20200610
